FAERS Safety Report 4894074-1 (Version None)
Quarter: 2006Q1

REPORT INFORMATION
  Report Type: 
  Country: None (occurrence: None)
  Receive Date: 20060127
  Receipt Date: 20050615
  Transmission Date: 20060701
  Serious: No
  Sender: FDA-Public Use
  Company Number: US-GLAXOSMITHKLINE-A0562820A

PATIENT

DRUGS (2)
  1. WELLBUTRIN [Suspect]
     Route: 048
  2. PROZAC [Concomitant]

REACTIONS (1)
  - MOOD ALTERED [None]
